FAERS Safety Report 9100550 (Version 2)
Quarter: 2013Q1

REPORT INFORMATION
  Report Type: Report from Study
  Country: US (occurrence: US)
  Receive Date: 20130215
  Receipt Date: 20130322
  Transmission Date: 20140127
  Serious: Yes (Hospitalization)
  Sender: FDA-Public Use
  Company Number: US-EISAI INC-E7389-03536-CLI-US

PATIENT
  Age: 65 Year
  Sex: Male
  Weight: 60 kg

DRUGS (11)
  1. E7389 (BOLD) [Suspect]
     Indication: NON-SMALL CELL LUNG CANCER
     Route: 041
     Dates: start: 20130109, end: 20130118
  2. E7389 (BOLD) [Suspect]
     Route: 041
     Dates: start: 20121022, end: 20121228
  3. E7389 (BOLD) [Suspect]
     Route: 041
     Dates: start: 20121008, end: 20121008
  4. DEXAMETHASONE [Concomitant]
     Indication: DECREASED APPETITE
     Route: 048
     Dates: start: 20121128
  5. ALBUTEROL [Concomitant]
     Indication: CHRONIC OBSTRUCTIVE PULMONARY DISEASE
     Dates: start: 2002
  6. NEXIUM [Concomitant]
     Indication: GASTROOESOPHAGEAL REFLUX DISEASE
     Route: 048
     Dates: start: 2010
  7. COMBIVENT [Concomitant]
     Indication: CHRONIC OBSTRUCTIVE PULMONARY DISEASE
     Dates: start: 2002
  8. ARIXTRA [Concomitant]
     Indication: PULMONARY EMBOLISM
     Dosage: 7.5 MG/0.6 ML
     Route: 058
     Dates: start: 201202
  9. CLARITINE [Concomitant]
     Indication: SEASONAL ALLERGY
     Route: 048
     Dates: start: 2010
  10. HYDROCODONE [Concomitant]
     Indication: PAIN
     Dosage: 10-325 MG
     Route: 048
     Dates: start: 2008
  11. PULMICORT [Concomitant]
     Indication: CHRONIC OBSTRUCTIVE PULMONARY DISEASE
     Dates: start: 2012

REACTIONS (1)
  - Atrial fibrillation [Recovered/Resolved]
